FAERS Safety Report 6339261-0 (Version None)
Quarter: 2009Q3

REPORT INFORMATION
  Report Type: 
  Country: None (occurrence: None)
  Receive Date: 20090903
  Receipt Date: 20090828
  Transmission Date: 20100115
  Serious: Yes (Hospitalization, Congenital Anomaly)
  Sender: FDA-Public Use
  Company Number: A0790550A

PATIENT
  Sex: Female
  Weight: 3.1 kg

DRUGS (2)
  1. PAXIL [Suspect]
     Indication: BIPOLAR DISORDER
  2. VITAMIN TAB [Concomitant]
     Indication: PRENATAL CARE

REACTIONS (4)
  - COGNITIVE DISORDER [None]
  - CONGENITAL ANOMALY [None]
  - DRUG EXPOSURE DURING PREGNANCY [None]
  - VENTRICULAR SEPTAL DEFECT [None]
